FAERS Safety Report 9056059 (Version 3)
Quarter: 2021Q1

REPORT INFORMATION
  Report Type: Spontaneous
  Country: ES (occurrence: ES)
  Receive Date: 20130205
  Receipt Date: 20210308
  Transmission Date: 20210420
  Serious: Yes (Death, Hospitalization, Other)
  Sender: FDA-Public Use
  Company Number: PHHY2013ES008911

PATIENT
  Age: 66 Year
  Sex: Male

DRUGS (9)
  1. FENTANYL. [Interacting]
     Active Substance: FENTANYL
     Indication: METASTASES TO PERITONEUM
  2. FENTANYL. [Interacting]
     Active Substance: FENTANYL
     Indication: GASTROINTESTINAL STROMAL TUMOUR
  3. IMATINIB. [Suspect]
     Active Substance: IMATINIB MESYLATE
     Indication: METASTASES TO PERITONEUM
     Dosage: 400 MILLIGRAM, ONCE A DAY
     Route: 065
  4. IMATINIB. [Interacting]
     Active Substance: IMATINIB MESYLATE
     Indication: GASTROINTESTINAL STROMAL TUMOUR
     Dosage: 800 MILLIGRAM, ONCE A DAY
     Route: 065
  5. TAMSULOSIN [Concomitant]
     Active Substance: TAMSULOSIN
     Indication: PRODUCT USED FOR UNKNOWN INDICATION
     Dosage: 0.4 MG, UNKNOWN
     Route: 065
  6. OMEPRAZOLE. [Concomitant]
     Active Substance: OMEPRAZOLE
     Indication: PRODUCT USED FOR UNKNOWN INDICATION
     Dosage: 20 MG
     Route: 065
  7. SALINE [Concomitant]
     Active Substance: SODIUM CHLORIDE
     Indication: PRODUCT USED FOR UNKNOWN INDICATION
     Dosage: UNK
     Route: 048
  8. MAGNESIUM CHELATE [Concomitant]
     Active Substance: MAGNESIUM
     Indication: PRODUCT USED FOR UNKNOWN INDICATION
     Dosage: UNK
     Route: 065
  9. FENTANYL. [Interacting]
     Active Substance: FENTANYL
     Indication: ABDOMINAL PAIN
     Dosage: 12 UG, Q72H
     Route: 062
     Dates: start: 20101123

REACTIONS (15)
  - Mental impairment [Fatal]
  - Altered state of consciousness [Fatal]
  - Vomiting [Fatal]
  - Hepatic function abnormal [Unknown]
  - Hypernatraemia [Unknown]
  - Drug interaction [Recovered/Resolved]
  - Urinary tract infection [Recovered/Resolved]
  - General physical health deterioration [Fatal]
  - Respiratory alkalosis [Unknown]
  - Mental status changes [Recovered/Resolved]
  - Hepatic encephalopathy [Fatal]
  - Nervous system disorder [Fatal]
  - Hyperventilation [Fatal]
  - Constipation [Recovered/Resolved]
  - Hepatotoxicity [Unknown]
